FAERS Safety Report 4775014-2 (Version None)
Quarter: 2005Q3

REPORT INFORMATION
  Report Type: 
  Country: None (occurrence: None)
  Receive Date: 20050920
  Receipt Date: 20050909
  Transmission Date: 20060218
  Serious: Yes (Life-Threatening)
  Sender: FDA-Public Use
  Company Number: 200510569BNE

PATIENT
  Age: 54 Year
  Sex: Male
  Weight: 70 kg

DRUGS (4)
  1. ASPIRIN [Suspect]
     Dosage: 300  MG, TOTAL DAILY, ORAL
     Route: 048
     Dates: start: 20040120
  2. WARFARIN SODIUM [Suspect]
     Dosage: 4 MG, TOTAL DAILY, ORAL
     Route: 048
     Dates: start: 20050504
  3. RANITIDINE [Concomitant]
  4. PARACETAMOL [Concomitant]

REACTIONS (5)
  - ABDOMINAL PAIN LOWER [None]
  - COAGULATION TIME PROLONGED [None]
  - DUODENAL ULCER [None]
  - GASTROINTESTINAL HAEMORRHAGE [None]
  - INTERNATIONAL NORMALISED RATIO INCREASED [None]
